FAERS Safety Report 5474776-9 (Version None)
Quarter: 2007Q4

REPORT INFORMATION
  Report Type: 
  Country: None (occurrence: None)
  Receive Date: 20071002
  Receipt Date: 20071001
  Transmission Date: 20080405
  Serious: Yes (Disabling)
  Sender: FDA-Public Use
  Company Number: B0477471A

PATIENT
  Age: 49 Year
  Sex: Male
  Weight: 85 kg

DRUGS (6)
  1. NELARABINE [Suspect]
     Dosage: 1500MGM2 PER DAY
     Route: 042
     Dates: start: 20070604, end: 20070608
  2. METHOTREXATE [Suspect]
     Dosage: 15MG PER DAY
     Route: 037
     Dates: start: 20070605, end: 20070605
  3. CYTARABINE [Suspect]
     Dosage: 40MG PER DAY
     Route: 037
     Dates: start: 20070605, end: 20070605
  4. DEPO-MEDROL [Concomitant]
  5. ENDOXAN [Concomitant]
     Indication: BONE MARROW TRANSPLANT
     Dates: start: 20070701
  6. TOTAL BODY IRRADIATION [Concomitant]
     Indication: BONE MARROW TRANSPLANT
     Dosage: 12GY PER DAY
     Dates: start: 20070701, end: 20070701

REACTIONS (8)
  - GAIT DISTURBANCE [None]
  - HYPOAESTHESIA [None]
  - MYELITIS [None]
  - NEUROPATHY [None]
  - PARAESTHESIA [None]
  - SOMNOLENCE [None]
  - SPINAL CORD DISORDER [None]
  - URINARY RETENTION [None]
